FAERS Safety Report 6911737-4 (Version None)
Quarter: 2010Q3

REPORT INFORMATION
  Report Type: 
  Country: None (occurrence: None)
  Receive Date: 20100806
  Receipt Date: 20100713
  Transmission Date: 20110219
  Serious: No
  Sender: FDA-Public Use
  Company Number: US-BAYER-201028064NA

PATIENT
  Age: 45 Year
  Sex: Female

DRUGS (1)
  1. MAGNEVIST [Suspect]
     Indication: NUCLEAR MAGNETIC RESONANCE IMAGING
     Dosage: AS USED: 16 ML  UNIT DOSE: 50 ML
     Dates: start: 20100713, end: 20100713

REACTIONS (5)
  - CHEST DISCOMFORT [None]
  - RETCHING [None]
  - TENSION HEADACHE [None]
  - TREMOR [None]
  - VOMITING [None]
